FAERS Safety Report 5139980-8 (Version None)
Quarter: 2006Q4

REPORT INFORMATION
  Report Type: 
  Country: None (occurrence: None)
  Receive Date: 20061025
  Receipt Date: 20061012
  Transmission Date: 20070319
  Serious: Yes (Hospitalization)
  Sender: FDA-Public Use
  Company Number: PHEH2006US12593

PATIENT
  Age: 80 Year
  Sex: Male
  Weight: 62.1428 kg

DRUGS (10)
  1. VISUDYNE [Suspect]
     Indication: MACULAR DEGENERATION
     Dates: start: 20061004, end: 20061004
  2. PLAVIX [Concomitant]
  3. PREVACID [Concomitant]
  4. FLOMAX [Concomitant]
  5. ASPIRIN [Concomitant]
  6. FOLIC ACID [Concomitant]
  7. NITROGLYCERIN [Concomitant]
  8. ZESTRIL [Concomitant]
  9. NORVASC [Concomitant]
  10. LOPRESSOR [Concomitant]

REACTIONS (4)
  - INFUSION SITE DISCOLOURATION [None]
  - INFUSION SITE PAIN [None]
  - INFUSION SITE REACTION [None]
  - SYNCOPE VASOVAGAL [None]
